FAERS Safety Report 14385733 (Version 1)
Quarter: 2018Q1

REPORT INFORMATION
  Report Type: Spontaneous
  Country: US (occurrence: US)
  Receive Date: 20180115
  Receipt Date: 20180115
  Transmission Date: 20180509
  Serious: Yes (Other)
  Sender: FDA-Public Use
  Company Number: US-SA-2017SA036816

PATIENT
  Age: 59 Year
  Sex: Female

DRUGS (7)
  1. TAXOTERE [Suspect]
     Active Substance: DOCETAXEL
     Indication: BREAST CANCER FEMALE
     Route: 051
     Dates: start: 20140324, end: 20140324
  2. NEOSAR [Concomitant]
     Active Substance: CYCLOPHOSPHAMIDE
  3. TAXOTERE [Suspect]
     Active Substance: DOCETAXEL
     Indication: BREAST CANCER FEMALE
     Route: 051
     Dates: start: 20050512, end: 20050512
  4. TAXOTERE [Suspect]
     Active Substance: DOCETAXEL
     Indication: BREAST CANCER FEMALE
     Route: 051
     Dates: start: 20140324, end: 20140324
  5. TAXOTERE [Suspect]
     Active Substance: DOCETAXEL
     Indication: BREAST CANCER FEMALE
     Route: 051
     Dates: start: 20131204, end: 20131204
  6. CYCLOPHOSPHAMIDE. [Concomitant]
     Active Substance: CYCLOPHOSPHAMIDE
     Route: 065
  7. PARACETAMOL/CODEINE PHOSPHATE [Concomitant]

REACTIONS (6)
  - Anxiety [Unknown]
  - Emotional distress [Unknown]
  - Alopecia [Not Recovered/Not Resolved]
  - Psychological trauma [Unknown]
  - Impaired quality of life [Unknown]
  - Pain [Unknown]

NARRATIVE: CASE EVENT DATE: 201410
